FAERS Safety Report 8613235-9 (Version None)
Quarter: 2012Q3

REPORT INFORMATION
  Report Type: 
  Country: None (occurrence: None)
  Receive Date: 20120822
  Receipt Date: 20120802
  Transmission Date: 20120928
  Serious: Yes (Hospitalization, Other)
  Sender: FDA-Public Use
  Company Number: JP-009507513-1208JPN007309

PATIENT

DRUGS (11)
  1. REBETOL [Suspect]
     Route: 048
     Dates: start: 20120515, end: 20120528
  2. PEG-INTRON [Suspect]
     Indication: HEPATITIS C
     Dosage: 1.5MCG/KG/WEEK
     Route: 058
     Dates: start: 20120124, end: 20120710
  3. REBETOL [Suspect]
     Route: 048
     Dates: start: 20120417
  4. TELAVIC [Suspect]
     Indication: HEPATITIS C
     Route: 048
     Dates: start: 20120124, end: 20120127
  5. REBETOL [Suspect]
     Route: 048
     Dates: start: 20120529
  6. TELAVIC [Suspect]
     Route: 048
     Dates: start: 20120128, end: 20120213
  7. TELAVIC [Suspect]
     Route: 048
     Dates: start: 20120214, end: 20120216
  8. TELAVIC [Suspect]
     Route: 048
     Dates: start: 20120217, end: 20120416
  9. REBETOL [Suspect]
     Route: 048
     Dates: start: 20120222, end: 20120416
  10. REBETOL [Suspect]
     Indication: HEPATITIS C
     Route: 048
     Dates: start: 20120124, end: 20120130
  11. REBETOL [Suspect]
     Route: 048
     Dates: start: 20120131, end: 20120221

REACTIONS (3)
  - DECREASED APPETITE [None]
  - MALAISE [None]
  - ANAEMIA [None]
